FAERS Safety Report 17618280 (Version 1)
Quarter: 2020Q2

REPORT INFORMATION
  Report Type: Spontaneous
  Country: US (occurrence: US)
  Receive Date: 20200402
  Receipt Date: 20200402
  Transmission Date: 20200713
  Serious: No
  Sender: FDA-Public Use
  Company Number: US-ROCHE-2507779

PATIENT
  Age: 68 Year
  Sex: Female
  Weight: 82.63 kg

DRUGS (1)
  1. ERIVEDGE [Suspect]
     Active Substance: VISMODEGIB
     Indication: BASAL CELL CARCINOMA
     Dosage: 1 CAP DAILY
     Route: 048
     Dates: start: 20191011

REACTIONS (5)
  - Abdominal pain upper [Unknown]
  - Weight decreased [Unknown]
  - Constipation [Unknown]
  - Taste disorder [Unknown]
  - Hypoaesthesia oral [Unknown]

NARRATIVE: CASE EVENT DATE: 201911
